FAERS Safety Report 18597108 (Version 1)
Quarter: 2020Q4

REPORT INFORMATION
  Report Type: Report from Study
  Country: CO (occurrence: CO)
  Receive Date: 20201209
  Receipt Date: 20201209
  Transmission Date: 20210114
  Serious: Yes (Life-Threatening)
  Sender: FDA-Public Use
  Company Number: CO-TAKEDA-CO202028167

PATIENT
  Age: 33 Year
  Sex: Female
  Weight: 73 kg

DRUGS (6)
  1. ICATIBANT [Suspect]
     Active Substance: ICATIBANT ACETATE
     Dosage: 30MG/3ML, AS REQ^D (EVERY 6 HOURS , MAXIMUM OF 3 IN 24 HOURS)
     Route: 058
     Dates: start: 20160715
  2. ICATIBANT [Suspect]
     Active Substance: ICATIBANT ACETATE
     Dosage: 30MG/3ML, AS REQ^D (EVERY 6 HOURS , MAXIMUM OF 3 IN 24 HOURS)
     Route: 058
     Dates: start: 20200914
  3. ICATIBANT [Suspect]
     Active Substance: ICATIBANT ACETATE
     Dosage: 30MG/3ML, AS REQ^D (EVERY 6 HOURS , MAXIMUM OF 3 IN 24 HOURS)
     Route: 058
     Dates: start: 20200914
  4. ICATIBANT [Suspect]
     Active Substance: ICATIBANT ACETATE
     Dosage: 30MG/3ML, AS REQ^D (EVERY 6 HOURS , MAXIMUM OF 3 IN 24 HOURS)
     Route: 058
     Dates: start: 20160715
  5. ICATIBANT [Suspect]
     Active Substance: ICATIBANT ACETATE
     Indication: HEREDITARY ANGIOEDEMA
     Dosage: 30MG/3ML, AS REQ^D
     Route: 058
     Dates: start: 20160715
  6. ICATIBANT [Suspect]
     Active Substance: ICATIBANT ACETATE
     Indication: HEREDITARY ANGIOEDEMA
     Dosage: 30MG/3ML, AS REQ^D
     Route: 058
     Dates: start: 20160715

REACTIONS (2)
  - Body height abnormal [Unknown]
  - Hereditary angioedema [Not Recovered/Not Resolved]

NARRATIVE: CASE EVENT DATE: 20201027
